APPROVED DRUG PRODUCT: HYDROCODONE BITARTRATE AND ACETAMINOPHEN
Active Ingredient: ACETAMINOPHEN; HYDROCODONE BITARTRATE
Strength: 300MG;5MG
Dosage Form/Route: TABLET;ORAL
Application: A090415 | Product #001
Applicant: PH HEALTH LTD
Approved: Jan 24, 2011 | RLD: No | RS: No | Type: DISCN